FAERS Safety Report 24738753 (Version 3)
Quarter: 2025Q2

REPORT INFORMATION
  Report Type: Report from Study
  Country: US (occurrence: US)
  Receive Date: 20241216
  Receipt Date: 20250613
  Transmission Date: 20250717
  Serious: No
  Sender: IPSEN BIOPHARMACEUTICALS, INC.
  Company Number: US-IPSEN Group, Research and Development-2024-25240

PATIENT
  Age: 36 Year
  Sex: Male
  Weight: 73 kg

DRUGS (3)
  1. BYLVAY [Suspect]
     Active Substance: ODEVIXIBAT
     Indication: Progressive familial intrahepatic cholestasis
     Dosage: TWO 1200 MCG ORAL CAPSULES BY MOUTH ONCE DAILY WITH A MEAL
     Route: 048
     Dates: start: 20211215
  2. BYLVAY [Suspect]
     Active Substance: ODEVIXIBAT
     Dosage: INCREASED TO TWICE DAILY (TAKE ONE 1200 MCG ORAL CAPSULE BY MOUTH FOUR TIMES DAILY WITH A MEAL)
     Route: 048
  3. URSODIOL [Concomitant]
     Active Substance: URSODIOL

REACTIONS (6)
  - Pruritus [Not Recovered/Not Resolved]
  - Jaundice [Not Recovered/Not Resolved]
  - Fatigue [Not Recovered/Not Resolved]
  - Diarrhoea [Not Recovered/Not Resolved]
  - Weight decreased [Not Recovered/Not Resolved]
  - Drug ineffective [Unknown]

NARRATIVE: CASE EVENT DATE: 20241201
